FAERS Safety Report 12572745 (Version 1)
Quarter: 2016Q3

REPORT INFORMATION
  Report Type: Spontaneous
  Country: IT (occurrence: IT)
  Receive Date: 20160720
  Receipt Date: 20160720
  Transmission Date: 20161109
  Serious: Yes (Other)
  Sender: FDA-Public Use
  Company Number: IT-ROCHE-1779067

PATIENT
  Age: 60 Year
  Sex: Female
  Weight: 74 kg

DRUGS (3)
  1. CARBOPLATIN. [Concomitant]
     Active Substance: CARBOPLATIN
     Dosage: 1 VIAL IV 45 ML 10 MG/ML
     Route: 042
     Dates: start: 20160202, end: 20160426
  2. AVASTIN [Suspect]
     Active Substance: BEVACIZUMAB
     Indication: FALLOPIAN TUBE CANCER
     Dosage: 1 X 400 MG VIAL
     Route: 042
     Dates: start: 20160223, end: 20160426
  3. PACLITAXEL. [Concomitant]
     Active Substance: PACLITAXEL
     Dosage: 1 GLASS VIAL CONTAINING 50 ML
     Route: 065
     Dates: start: 20160202, end: 20160426

REACTIONS (1)
  - Acute coronary syndrome [Not Recovered/Not Resolved]

NARRATIVE: CASE EVENT DATE: 20160518
